FAERS Safety Report 17690868 (Version 1)
Quarter: 2020Q2

REPORT INFORMATION
  Report Type: Spontaneous
  Country: TW (occurrence: TW)
  Receive Date: 20200422
  Receipt Date: 20200422
  Transmission Date: 20200714
  Serious: Yes (Hospitalization, Other)
  Sender: FDA-Public Use
  Company Number: TW-SNT-000007

PATIENT
  Age: 18 Year
  Sex: Female

DRUGS (1)
  1. BUPROPION. [Suspect]
     Active Substance: BUPROPION
     Indication: DEPRESSION
     Dosage: 1.5 TABLETS/DAY OF BUPROPION XL.
     Route: 048

REACTIONS (3)
  - Postictal state [Unknown]
  - Medication error [Unknown]
  - Generalised tonic-clonic seizure [Recovered/Resolved]
